FAERS Safety Report 18085925 (Version 2)
Quarter: 2021Q3

REPORT INFORMATION
  Report Type: Spontaneous
  Country: US (occurrence: US)
  Receive Date: 20200728
  Receipt Date: 20210729
  Transmission Date: 20211014
  Serious: No
  Sender: FDA-Public Use
  Company Number: US-PERRIGO-20US007947

PATIENT
  Age: 57 Year
  Sex: Male
  Weight: 99.77 kg

DRUGS (2)
  1. PROAIR HFA [Concomitant]
     Active Substance: ALBUTEROL SULFATE
     Indication: ASTHMA
     Dosage: UNKNOWN, PRN
     Route: 055
  2. MINOXIDIL. [Suspect]
     Active Substance: MINOXIDIL
     Indication: ALOPECIA
     Dosage: 1 ML, 1 TO 2 TIMES DAILY
     Route: 061
     Dates: start: 202003, end: 20200617

REACTIONS (6)
  - Application site ulcer [Recovering/Resolving]
  - Dandruff [Recovering/Resolving]
  - Hypersensitivity [Recovering/Resolving]
  - Application site pain [Recovered/Resolved]
  - Inappropriate schedule of product administration [Recovered/Resolved]
  - Wrong technique in product usage process [Recovered/Resolved]

NARRATIVE: CASE EVENT DATE: 202003
